FAERS Safety Report 23563723 (Version 2)
Quarter: 2024Q1

REPORT INFORMATION
  Report Type: Spontaneous
  Country: JP (occurrence: JP)
  Receive Date: 20240226
  Receipt Date: 20240318
  Transmission Date: 20240409
  Serious: Yes (Death, Life-Threatening, Hospitalization, Other)
  Sender: FDA-Public Use
  Company Number: JP-CHUGAI-2023041285AA

PATIENT
  Age: 58 Year
  Sex: Male

DRUGS (4)
  1. TECENTRIQ [Suspect]
     Active Substance: ATEZOLIZUMAB
     Indication: Hepatocellular carcinoma
     Route: 065
     Dates: start: 20230704
  2. TECENTRIQ [Suspect]
     Active Substance: ATEZOLIZUMAB
     Route: 065
     Dates: end: 20231204
  3. AVASTIN [Suspect]
     Active Substance: BEVACIZUMAB
     Indication: Hepatocellular carcinoma
     Route: 065
     Dates: start: 20230704
  4. AVASTIN [Suspect]
     Active Substance: BEVACIZUMAB
     Route: 065
     Dates: end: 20231204

REACTIONS (7)
  - Hepatic cirrhosis [Fatal]
  - Gastric perforation [Fatal]
  - Platelet count decreased [Recovering/Resolving]
  - General physical health deterioration [Unknown]
  - Diarrhoea [Unknown]
  - Ascites [Not Recovered/Not Resolved]
  - Blood pressure decreased [Not Recovered/Not Resolved]

NARRATIVE: CASE EVENT DATE: 20240101
